FAERS Safety Report 4588724-7 (Version None)
Quarter: 2005Q1

REPORT INFORMATION
  Report Type: 
  Country: None (occurrence: None)
  Receive Date: 20050222
  Receipt Date: 20050207
  Transmission Date: 20050727
  Serious: Yes (Death, Congenital Anomaly)
  Sender: FDA-Public Use
  Company Number: NL-JNJFOC-20050202232

PATIENT
  Sex: Male
  Weight: 2.63 kg

DRUGS (16)
  1. DURAGESIC-100 [Suspect]
     Indication: DRUG USE FOR UNKNOWN INDICATION
     Route: 015
  2. TRAMADOL HYDROCHLORIDE [Suspect]
     Indication: DRUG USE FOR UNKNOWN INDICATION
     Route: 015
  3. ZALDIAR [Suspect]
     Indication: DRUG USE FOR UNKNOWN INDICATION
     Route: 064
  4. THYRAX [Suspect]
     Indication: DRUG USE FOR UNKNOWN INDICATION
     Route: 015
  5. CLOMIPRAMINE [Suspect]
     Indication: DRUG USE FOR UNKNOWN INDICATION
     Route: 015
  6. NOZINAN [Suspect]
     Indication: DRUG USE FOR UNKNOWN INDICATION
     Route: 015
  7. PARACETAMOL [Suspect]
     Indication: DRUG USE FOR UNKNOWN INDICATION
     Route: 015
  8. DICLOFENAC [Suspect]
     Indication: DRUG USE FOR UNKNOWN INDICATION
     Route: 015
  9. IMPORTAL [Suspect]
     Indication: DRUG USE FOR UNKNOWN INDICATION
     Route: 015
  10. AMOXICILLIN [Suspect]
     Indication: DRUG USE FOR UNKNOWN INDICATION
     Route: 015
  11. NITROFURANTOIN [Suspect]
     Indication: DRUG USE FOR UNKNOWN INDICATION
     Route: 015
  12. FLUVOXAMINE MALEATE [Suspect]
     Indication: DRUG USE FOR UNKNOWN INDICATION
     Route: 015
  13. HYDROXYZINE HYDROCHLORIDE [Suspect]
     Indication: DRUG USE FOR UNKNOWN INDICATION
     Route: 015
  14. LEVOTHYROXINE [Suspect]
     Indication: DRUG USE FOR UNKNOWN INDICATION
     Route: 015
  15. AMOXICILLIN AND CLAVULANATE POTASSIUM [Suspect]
     Route: 015
  16. AMOXICILLIN AND CLAVULANATE POTASSIUM [Suspect]
     Indication: DRUG USE FOR UNKNOWN INDICATION
     Route: 015

REACTIONS (6)
  - CONGENITAL ACROCHORDON [None]
  - CONGENITAL HEARING DISORDER [None]
  - DEATH NEONATAL [None]
  - FACIAL DYSMORPHISM [None]
  - HYDROCEPHALUS [None]
  - RIB HYPOPLASIA [None]
